FAERS Safety Report 7232891-3 (Version None)
Quarter: 2011Q1

REPORT INFORMATION
  Report Type: 
  Country: None (occurrence: None)
  Receive Date: 20110119
  Receipt Date: 20110113
  Transmission Date: 20110831
  Serious: Yes (Hospitalization)
  Sender: FDA-Public Use
  Company Number: FR-PFIZER INC-2011008444

PATIENT
  Age: 67 Year
  Sex: Male

DRUGS (6)
  1. CLINDAMYCIN HCL [Suspect]
     Indication: SEPSIS
     Dosage: 600 MG, 3X/DAY
     Route: 048
     Dates: start: 20101122, end: 20101124
  2. GENTAMICIN [Concomitant]
     Indication: SEPSIS
     Dosage: UNK
     Dates: start: 20101122, end: 20101124
  3. ZYVOX [Concomitant]
     Indication: SEPSIS
     Dosage: UNK
     Dates: start: 20101126
  4. CLINDAMYCIN HCL [Suspect]
     Dosage: UNK
     Dates: start: 20101130, end: 20101207
  5. VANCOMYCIN [Concomitant]
     Indication: SEPSIS
     Dosage: UNK
     Dates: start: 20101124, end: 20101126
  6. TAZOCILLINE [Concomitant]
     Indication: SEPSIS
     Dosage: UNK
     Dates: start: 20101124

REACTIONS (1)
  - RASH ERYTHEMATOUS [None]
